FAERS Safety Report 25348599 (Version 2)
Quarter: 2025Q2

REPORT INFORMATION
  Report Type: Spontaneous
  Country: US (occurrence: US)
  Receive Date: 20250522
  Receipt Date: 20250613
  Transmission Date: 20250716
  Serious: Yes (Hospitalization)
  Sender: FRESENIUS KABI
  Company Number: US-FreseniusKabi-FK202506933

PATIENT
  Age: 61 Year
  Sex: Female

DRUGS (3)
  1. FLUDARABINE [Suspect]
     Active Substance: FLUDARABINE PHOSPHATE
     Indication: Chemotherapy
     Dosage: FORM OF ADMINISTRATION: INFUSION?DOSE- 30 MILLIGRAM/SQ. METER
     Route: 042
     Dates: start: 20250424, end: 20250426
  2. CB-012 [Suspect]
     Active Substance: CB-012
     Indication: Acute myeloid leukaemia
     Route: 042
  3. CYCLOPHOSPHAMIDE [Suspect]
     Active Substance: CYCLOPHOSPHAMIDE
     Indication: Chemotherapy
     Dosage: FORM OF ADMINISTRATION: INFUSION?DOSAGE AND FREQUENCY- 750 MILLIGRAM/SQ. METER, QD
     Route: 042
     Dates: start: 20250424, end: 20250426

REACTIONS (5)
  - Nausea [Recovered/Resolved]
  - Vomiting [Recovered/Resolved]
  - Off label use [Unknown]
  - Cytokine release syndrome [Recovered/Resolved]
  - Immune effector cell-associated neurotoxicity syndrome [Recovered/Resolved]

NARRATIVE: CASE EVENT DATE: 20250424
